FAERS Safety Report 15065747 (Version 2)
Quarter: 2018Q3

REPORT INFORMATION
  Report Type: Other
  Country: DE (occurrence: DE)
  Receive Date: 20180626
  Receipt Date: 20180912
  Transmission Date: 20181010
  Serious: Yes (Other)
  Sender: FDA-Public Use
  Company Number: DE-LUPIN PHARMACEUTICALS INC.-2018-04565

PATIENT
  Age: 1 Day
  Sex: Male
  Weight: 3.28 kg

DRUGS (8)
  1. CYMBALTA [Suspect]
     Active Substance: DULOXETINE HYDROCHLORIDE
     Indication: DEPRESSION
     Dosage: VARYING DOSAGE 60?120 MG/D
     Route: 064
     Dates: start: 20161115, end: 20170821
  2. MISOPROSTOL. [Concomitant]
     Active Substance: MISOPROSTOL
     Indication: LABOUR INDUCTION
     Dosage: UNK
     Route: 064
  3. PREGABALIN. [Suspect]
     Active Substance: PREGABALIN
     Dosage: 450 MG/D/ THERAPY RE?STARTED IN WEEK 34+3
     Route: 064
  4. PREGABALIN. [Suspect]
     Active Substance: PREGABALIN
     Indication: ANXIETY DISORDER
     Dosage: 450 MG/D/ THERAPY STOPPED IN WEEK 5,
     Route: 064
  5. FOLSAEURE [Concomitant]
     Active Substance: FOLIC ACID
     Indication: PROPHYLAXIS OF NEURAL TUBE DEFECT
     Dosage: UNK
     Route: 064
     Dates: start: 20161115, end: 20170713
  6. QUETIAPINE. [Suspect]
     Active Substance: QUETIAPINE
     Indication: RESTLESSNESS
     Dosage: 250 MG/D/ 150MG RETARDED
     Route: 064
     Dates: start: 20161115, end: 20170821
  7. LORAZEPAM. [Suspect]
     Active Substance: LORAZEPAM
     Indication: PANIC DISORDER
     Dosage: 3 MG PER DAY/ 1?3 MG/D, IF REQUIRED, BUT DAILY
     Route: 064
  8. PROMETHAZINE [Suspect]
     Active Substance: PROMETHAZINE\PROMETHAZINE HYDROCHLORIDE
     Indication: SLEEP DISORDER
     Dosage: 50 MG, PER DAY
     Route: 064
     Dates: start: 20161115, end: 20170821

REACTIONS (3)
  - Foetal exposure during pregnancy [Unknown]
  - Respiratory disorder neonatal [Recovered/Resolved]
  - Drug withdrawal syndrome neonatal [Recovered/Resolved]

NARRATIVE: CASE EVENT DATE: 20170821
